FAERS Safety Report 9122560 (Version 1)
Quarter: 2013Q1

REPORT INFORMATION
  Report Type: Spontaneous
  Country: FR (occurrence: FR)
  Receive Date: 20130115
  Receipt Date: 20130115
  Transmission Date: 20140127
  Serious: Yes (Hospitalization, Other)
  Sender: FDA-Public Use
  Company Number: FR-PFIZER INC-2012282428

PATIENT
  Age: 86 Year
  Sex: Male
  Weight: 65 kg

DRUGS (4)
  1. NEURONTIN [Suspect]
     Dosage: 300 MG, 3X/DAY
  2. TRIATEC [Concomitant]
     Indication: HYPERTENSION
     Dosage: 1 DF DAILY
     Route: 048
     Dates: end: 20121212
  3. ASASANTIN [Concomitant]
     Indication: ANTICOAGULANT THERAPY
     Dosage: 2 DF DAILY
     Route: 048
     Dates: end: 20120823
  4. VASTEN [Concomitant]
     Indication: HYPERCHOLESTEROLAEMIA
     Dosage: 1 DF DAILY
     Route: 048

REACTIONS (2)
  - Transient ischaemic attack [Recovered/Resolved]
  - Arrhythmia [Unknown]
